FAERS Safety Report 18473196 (Version 1)
Quarter: 2020Q4

REPORT INFORMATION
  Report Type: Spontaneous
  Country: CA (occurrence: CA)
  Receive Date: 20201106
  Receipt Date: 20201106
  Transmission Date: 20210114
  Serious: Yes (Hospitalization, Other)
  Sender: FDA-Public Use
  Company Number: CA-JNJFOC-20201051943

PATIENT
  Age: 56 Year
  Sex: Female

DRUGS (9)
  1. IMMUNOGLOBULIN G HUMAN [Suspect]
     Active Substance: HUMAN IMMUNOGLOBULIN G
     Indication: IMMUNODEFICIENCY
     Route: 065
  2. LEFLUNOMIDE. [Concomitant]
     Active Substance: LEFLUNOMIDE
     Route: 048
  3. CELEBREX [Concomitant]
     Active Substance: CELECOXIB
     Indication: ARTHRITIS
     Route: 048
  4. HYDROCORTISONE. [Concomitant]
     Active Substance: HYDROCORTISONE
     Indication: PREMEDICATION
     Route: 042
  5. DIPHENHYDRAMINE. [Concomitant]
     Active Substance: DIPHENHYDRAMINE
     Indication: PREMEDICATION
     Route: 048
  6. REMICADE [Suspect]
     Active Substance: INFLIXIMAB
     Indication: RHEUMATOID ARTHRITIS
     Route: 042
  7. HYDROCORTISONE SODIUM SUCCINATE [Concomitant]
     Active Substance: HYDROCORTISONE SODIUM SUCCINATE
     Indication: ADVERSE DRUG REACTION
     Route: 042
  8. CETIRIZINE HYDROCHLORIDE. [Concomitant]
     Active Substance: CETIRIZINE HYDROCHLORIDE
     Route: 048
  9. BENADRYL [Concomitant]
     Active Substance: DIPHENHYDRAMINE HYDROCHLORIDE
     Route: 042

REACTIONS (17)
  - Heart rate increased [Recovered/Resolved]
  - Dyspnoea [Recovered/Resolved]
  - Arthritis [Recovered/Resolved]
  - Paraesthesia [Recovered/Resolved]
  - Ear discomfort [Recovered/Resolved]
  - Sensation of foreign body [Recovered/Resolved]
  - Cystitis [Recovered/Resolved]
  - Oropharyngeal discomfort [Recovered/Resolved]
  - Dry mouth [Recovered/Resolved]
  - Tremor [Recovered/Resolved]
  - Anaphylactic reaction [Recovered/Resolved]
  - Erythema [Recovered/Resolved]
  - Pruritus [Recovered/Resolved]
  - Aphonia [Recovered/Resolved]
  - Blood pressure increased [Recovered/Resolved]
  - Off label use [Recovered/Resolved]
  - Respiratory rate increased [Recovered/Resolved]
